FAERS Safety Report 10028794 (Version 1)
Quarter: 2014Q1

REPORT INFORMATION
  Report Type: Other
  Country: DE (occurrence: DE)
  Receive Date: 20140321
  Receipt Date: 20140321
  Transmission Date: 20141002
  Serious: Yes (Hospitalization)
  Sender: FDA-Public Use
  Company Number: DE-ACORDA-ACO_102446_2014

PATIENT
  Age: 35 Year
  Sex: Male

DRUGS (2)
  1. FAMPYRA [Suspect]
     Indication: RELAPSING-REMITTING MULTIPLE SCLEROSIS
     Dosage: 10 MG, BID
     Route: 048
     Dates: start: 201310
  2. GILENYA [Suspect]
     Indication: PRODUCT USED FOR UNKNOWN INDICATION
     Dosage: 0.5 MG, QD
     Dates: start: 201310

REACTIONS (1)
  - Syncope [Recovered/Resolved]
